FAERS Safety Report 6474777-8 (Version None)
Quarter: 2009Q4

REPORT INFORMATION
  Report Type: 
  Country: None (occurrence: None)
  Receive Date: 20091204
  Receipt Date: 20090617
  Transmission Date: 20100525
  Serious: Yes (Other)
  Sender: FDA-Public Use
  Company Number: US-ELI_LILLY_AND_COMPANY-US200902002442

PATIENT
  Sex: Female
  Weight: 65.306 kg

DRUGS (8)
  1. BYETTA [Suspect]
     Indication: TYPE 2 DIABETES MELLITUS
     Dosage: 5 UG, 2/D
     Route: 058
     Dates: start: 20080501, end: 20080701
  2. BYETTA [Suspect]
     Dosage: 10 UG, 2/D
     Dates: start: 20080701, end: 20090127
  3. PLAVIX [Concomitant]
     Indication: CORONARY ARTERY DISEASE
     Dosage: UNK, DAILY (1/D)
     Route: 048
  4. VYTORIN [Concomitant]
     Indication: HYPERLIPIDAEMIA
     Dosage: UNK, EACH EVENING
  5. AZOR [Concomitant]
     Dates: start: 20080201
  6. GLIPIZIDE [Concomitant]
     Indication: TYPE 2 DIABETES MELLITUS
     Dosage: UNK, DAILY (1/D)
     Route: 048
  7. ASPIRIN [Concomitant]
     Indication: CORONARY ARTERY DISEASE
     Dosage: UNK, DAILY (1/D)
     Route: 048
  8. FISH OIL [Concomitant]

REACTIONS (3)
  - PANCREATITIS [None]
  - RENAL INJURY [None]
  - WEIGHT DECREASED [None]
